FAERS Safety Report 16744200 (Version 4)
Quarter: 2021Q2

REPORT INFORMATION
  Report Type: Spontaneous
  Country: GB (occurrence: GB)
  Receive Date: 20190827
  Receipt Date: 20210415
  Transmission Date: 20210716
  Serious: Yes (Life-Threatening, Hospitalization, Other)
  Sender: FDA-Public Use
  Company Number: PHHY2019GB197312

PATIENT
  Age: 57 Year
  Sex: Male
  Weight: 115 kg

DRUGS (5)
  1. BISOPROLOL [Suspect]
     Active Substance: BISOPROLOL
     Indication: INTENTIONAL OVERDOSE
     Dosage: UNK (LARGE)
     Route: 065
  2. ATORVASTATIN [Suspect]
     Active Substance: ATORVASTATIN
     Indication: INTENTIONAL OVERDOSE
     Dosage: UNK (LARGE)
     Route: 065
  3. DILTIAZEM. [Suspect]
     Active Substance: DILTIAZEM
     Indication: INTENTIONAL OVERDOSE
     Dosage: UNK (LARGE)
     Route: 065
  4. RAMIPRIL. [Suspect]
     Active Substance: RAMIPRIL
     Indication: INTENTIONAL OVERDOSE
     Dosage: UNK (LARGE)
     Route: 065
  5. APIXABAN [Suspect]
     Active Substance: APIXABAN
     Indication: INTENTIONAL OVERDOSE
     Dosage: UNK (LARGE)
     Route: 065

REACTIONS (7)
  - Hypotension [Recovering/Resolving]
  - Atrial fibrillation [Recovering/Resolving]
  - Drug ineffective [Unknown]
  - Bradycardia [Recovering/Resolving]
  - Oliguria [Recovering/Resolving]
  - Intentional overdose [Unknown]
  - Loss of consciousness [Recovered/Resolved]
